FAERS Safety Report 26162821 (Version 1)
Quarter: 2025Q4

REPORT INFORMATION
  Report Type: Report from Study
  Country: EU (occurrence: EU)
  Receive Date: 20251216
  Receipt Date: 20251216
  Transmission Date: 20260117
  Serious: Yes (Other)
  Sender: NOVARTIS
  Company Number: EU-002147023-NVSC2025ES186055

PATIENT
  Age: 70 Year
  Sex: Female

DRUGS (1)
  1. RIBOCICLIB [Suspect]
     Active Substance: RIBOCICLIB
     Indication: Hormone receptor positive HER2 negative breast cancer
     Dosage: 400 MG, QD
     Route: 048

REACTIONS (8)
  - Neutropenia [Unknown]
  - Cytopenia [Unknown]
  - Asthenia [Unknown]
  - Arthralgia [Unknown]
  - Hot flush [Unknown]
  - Transaminases increased [Unknown]
  - Musculoskeletal stiffness [Unknown]
  - Skin disorder [Unknown]
